FAERS Safety Report 25935272 (Version 1)
Quarter: 2025Q4

REPORT INFORMATION
  Report Type: Spontaneous
  Country: US (occurrence: US)
  Receive Date: 20251017
  Receipt Date: 20251017
  Transmission Date: 20260118
  Serious: Yes (Death, Other)
  Sender: LABORATOIRES SERB
  Company Number: US-SERB S.A.S.-2186760

PATIENT
  Age: 43 Year
  Sex: Male

DRUGS (2)
  1. CROFAB [Suspect]
     Active Substance: AGKISTRODON PISCIVORUS IMMUNE FAB ANTIVENIN (OVINE)\CROTALUS ADAMANTEUS IMMUNE FAB ANTIVENIN (OVINE)
     Indication: Snake bite
  2. CROTALINE ANTIVENIN, POLYVALENT [Suspect]
     Active Substance: CROTALINE ANTIVENIN, POLYVALENT

REACTIONS (2)
  - Hepatic failure [Fatal]
  - Renal failure [Fatal]
